FAERS Safety Report 6662451-4 (Version None)
Quarter: 2010Q1

REPORT INFORMATION
  Report Type: 
  Country: None (occurrence: None)
  Receive Date: 20100329
  Receipt Date: 20100316
  Transmission Date: 20100710
  Serious: Yes (Other)
  Sender: FDA-Public Use
  Company Number: B0642873A

PATIENT
  Sex: Female

DRUGS (5)
  1. BUSULPHAN (FORMULATION UNKNOWN) (BUSULFAN) (GENERIC) [Suspect]
     Indication: BONE MARROW TRANSPLANT
  2. CYCLOPHOSPHAMIDE [Suspect]
     Indication: BONE MARROW TRANSPLANT
  3. ANTITHYMOCYTE IG (FORMULATION UNKNOWN) (ANTITHYMOCYTE IG) [Suspect]
     Indication: PROPHYLAXIS AGAINST GRAFT VERSUS HOST DISEASE
  4. CYCLOSPORINE [Suspect]
     Indication: PROPHYLAXIS AGAINST GRAFT VERSUS HOST DISEASE
  5. MYCOPHENOLATE MOFETIL [Suspect]
     Indication: PROPHYLAXIS AGAINST GRAFT VERSUS HOST DISEASE

REACTIONS (3)
  - BACTERAEMIA [None]
  - CHOLANGITIS [None]
  - COMPLICATIONS OF TRANSPLANT SURGERY [None]
